FAERS Safety Report 5409609-X (Version None)
Quarter: 2007Q3

REPORT INFORMATION
  Report Type: 
  Country: None (occurrence: None)
  Receive Date: 20070807
  Receipt Date: 20070807
  Transmission Date: 20080115
  Serious: No
  Sender: FDA-Public Use
  Company Number: None

PATIENT
  Age: 31 Year
  Sex: Male
  Weight: 55.3 kg

DRUGS (1)
  1. LITHIUM CARBONATE [Suspect]
     Dosage: 300 MG AMHS PO
     Route: 048

REACTIONS (1)
  - RASH [None]
